FAERS Safety Report 19291431 (Version 1)
Quarter: 2021Q2

REPORT INFORMATION
  Report Type: Spontaneous
  Country: PL (occurrence: PL)
  Receive Date: 20210523
  Receipt Date: 20210523
  Transmission Date: 20210717
  Serious: Yes (Other)
  Sender: FDA-Public Use
  Company Number: PL-TEVA-2021-PL-1913182

PATIENT
  Age: 81 Year
  Sex: Male
  Weight: 57 kg

DRUGS (4)
  1. LEUCOVORIN. [Suspect]
     Active Substance: LEUCOVORIN
     Indication: COLON CANCER
     Dosage: 332 MG
     Route: 065
     Dates: start: 20171211, end: 20171213
  2. OXALIPLATIN ACCORD [Suspect]
     Active Substance: OXALIPLATIN
     Indication: COLON CANCER
     Dosage: 141 MG
     Route: 065
     Dates: start: 20171211, end: 20171213
  3. FLUOROURACIL?EBEWE [Suspect]
     Active Substance: FLUOROURACIL
     Indication: COLON CANCER
     Dosage: DOSE: 664 MG ? BOLUS; 996 MG ? DRIP
     Route: 065
     Dates: start: 20171211, end: 20171213
  4. AVASTIN [Suspect]
     Active Substance: BEVACIZUMAB
     Indication: COLON CANCER
     Dosage: 570 MG
     Route: 065
     Dates: start: 20171211, end: 20171213

REACTIONS (1)
  - Neutropenia [Unknown]

NARRATIVE: CASE EVENT DATE: 20180102
